FAERS Safety Report 17765790 (Version 1)
Quarter: 2020Q2

REPORT INFORMATION
  Report Type: Spontaneous
  Country: US (occurrence: US)
  Receive Date: 20200509
  Receipt Date: 20200509
  Transmission Date: 20200714
  Serious: Yes (Hospitalization)
  Sender: FDA-Public Use
  Company Number: None

PATIENT
  Age: 7 Year
  Sex: Male
  Weight: 27 kg

DRUGS (4)
  1. MERCAOTOPURINE [Suspect]
     Active Substance: MERCAPTOPURINE
     Dates: end: 20200427
  2. PREDNISONE. [Suspect]
     Active Substance: PREDNISONE
     Dates: end: 20200301
  3. METHOTREXATE. [Suspect]
     Active Substance: METHOTREXATE
     Dates: end: 20200423
  4. VINCRISTINE SULFATE. [Suspect]
     Active Substance: VINCRISTINE SULFATE
     Dosage: ?          OTHER DOSE:4.4MG;?
     Dates: end: 20200421

REACTIONS (13)
  - Vomiting [None]
  - Catheter site haemorrhage [None]
  - Abdominal pain [None]
  - Thrombocytopenia [None]
  - Haptoglobin decreased [None]
  - Hypotension [None]
  - Septic shock [None]
  - Hypertension [None]
  - Blood lactate dehydrogenase increased [None]
  - Acute kidney injury [None]
  - Diarrhoea haemorrhagic [None]
  - Pulseless electrical activity [None]
  - Retching [None]

NARRATIVE: CASE EVENT DATE: 20200428
